FAERS Safety Report 10233992 (Version 1)
Quarter: 2014Q1

REPORT INFORMATION
  Report Type: Spontaneous
  Country: US (occurrence: None)
  Receive Date: 20140306
  Receipt Date: 20140306
  Transmission Date: 20141002
  Serious: Yes (Other)
  Sender: FDA-Public Use
  Company Number: 163-21880-13014039

PATIENT
  Age: 85 Year
  Sex: Female
  Weight: 46.27 kg

DRUGS (7)
  1. REVLIMID (LENALIDOMIDE) (5 MILLIGRAM, CAPSULES) [Suspect]
     Indication: MYELODYSPLASTIC SYNDROME
     Dosage: 5 MG, 28 IN 28 D
     Route: 048
     Dates: start: 20120411
  2. METOPROLOL (METOPROLOL) [Concomitant]
  3. IMODIUM (LOPERAMIDE HYDROCHLORIDE) (LOPERAMIDE) [Concomitant]
  4. NEXIUM (ESOMEPRAZOLE) [Concomitant]
  5. VITAMIN D (ERGOCALCIFEROL) [Concomitant]
  6. LOMOTIL (LOMOTIL) [Concomitant]
  7. VIDAZA (AZACITADINE) [Concomitant]

REACTIONS (7)
  - Red blood cell count increased [None]
  - White blood cell count decreased [None]
  - Platelet count decreased [None]
  - Haemorrhagic diathesis [None]
  - Fatigue [None]
  - Diarrhoea [None]
  - Adverse drug reaction [None]
